FAERS Safety Report 6604777-6 (Version None)
Quarter: 2010Q1

REPORT INFORMATION
  Report Type: 
  Country: None (occurrence: None)
  Receive Date: 20100226
  Receipt Date: 20100111
  Transmission Date: 20100710
  Serious: Yes (Other)
  Sender: FDA-Public Use
  Company Number: US-BRISTOL-MYERS SQUIBB COMPANY-14931836

PATIENT
  Age: 54 Year
  Sex: Female

DRUGS (9)
  1. ONGLYZA [Suspect]
  2. SIMVASTATIN [Suspect]
  3. TRICOR [Concomitant]
  4. LABETALOL HCL [Concomitant]
     Dosage: 1 DF = 200 UNIT NOT SPECIFIED.
  5. NOVOLIN 70/30 [Concomitant]
  6. XANAX [Concomitant]
  7. GLIPIZIDE [Concomitant]
  8. ADVAIR DISKUS 100/50 [Concomitant]
     Dosage: 1 DF - 250/50(UNIT NOT SPECIFIED)
  9. NEXIUM [Concomitant]

REACTIONS (1)
  - HYPERSENSITIVITY [None]
